FAERS Safety Report 18775510 (Version 1)
Quarter: 2021Q1

REPORT INFORMATION
  Report Type: Spontaneous
  Country: FR (occurrence: FR)
  Receive Date: 20210122
  Receipt Date: 20210122
  Transmission Date: 20210419
  Serious: Yes (Hospitalization)
  Sender: FDA-Public Use
  Company Number: FR-TEVA-2021-FR-1871177

PATIENT
  Age: 69 Year
  Sex: Male
  Weight: 90 kg

DRUGS (15)
  1. HALDOL [Concomitant]
     Active Substance: HALOPERIDOL
  2. ATORVASTATINE [Concomitant]
     Active Substance: ATORVASTATIN
  3. LASILIX [Concomitant]
     Active Substance: FUROSEMIDE
  4. AMLOR [Concomitant]
     Active Substance: AMLODIPINE BESYLATE
  5. JANUVIA [Concomitant]
     Active Substance: SITAGLIPTIN PHOSPHATE
  6. BISOCE [Concomitant]
     Active Substance: BISOPROLOL
  7. TELMISARTAN. [Concomitant]
     Active Substance: TELMISARTAN
  8. DIFFU K [Concomitant]
     Active Substance: POTASSIUM CHLORIDE
  9. KARDEGIC [Concomitant]
     Active Substance: ASPIRIN DL-LYSINE
  10. VANCOMYCINE [Suspect]
     Active Substance: VANCOMYCIN
     Indication: STAPHYLOCOCCAL BACTERAEMIA
     Dosage: 3 G
     Route: 042
     Dates: start: 20200807, end: 20200826
  11. PANTOPRAZOLE [Concomitant]
     Active Substance: PANTOPRAZOLE
  12. FUMAFER [Concomitant]
     Active Substance: FERROUS FUMARATE
  13. INSULINE GLARGINE ((BACTERIE/ESCHERICHIA COLI)) [Concomitant]
     Active Substance: INSULIN GLARGINE
  14. REPAGLINIDE. [Concomitant]
     Active Substance: REPAGLINIDE
  15. METFORMINE [Concomitant]
     Active Substance: METFORMIN HYDROCHLORIDE

REACTIONS (1)
  - Drug reaction with eosinophilia and systemic symptoms [Recovered/Resolved]

NARRATIVE: CASE EVENT DATE: 20200830
